FAERS Safety Report 5632476-6 (Version None)
Quarter: 2008Q1

REPORT INFORMATION
  Report Type: 
  Country: None (occurrence: None)
  Receive Date: 20080131
  Receipt Date: 20071119
  Transmission Date: 20080703
  Serious: No
  Sender: FDA-Public Use
  Company Number: 163-21880-07100917

PATIENT
  Age: 66 Year
  Sex: Female
  Weight: 55.7924 kg

DRUGS (10)
  1. REVLIMID [Suspect]
     Indication: MULTIPLE MYELOMA
     Dosage: 5 MG, 1 IN 2 D, ORAL; 10-15MG, DAILY, ORAL
     Route: 048
     Dates: start: 20070821, end: 20071001
  2. REVLIMID [Suspect]
     Indication: MULTIPLE MYELOMA
     Dosage: 5 MG, 1 IN 2 D, ORAL; 10-15MG, DAILY, ORAL
     Route: 048
     Dates: start: 20071012
  3. LASIX [Concomitant]
  4. REMERON [Concomitant]
  5. POTASSIUM CHLORIDE [Concomitant]
  6. PROTONIX [Concomitant]
  7. LEVOTHYROXINE SODIUM [Concomitant]
  8. VICODIN [Concomitant]
  9. ROBAXIN [Concomitant]
  10. COUMADIN [Concomitant]

REACTIONS (2)
  - FATIGUE [None]
  - TREMOR [None]
